FAERS Safety Report 6214580-7 (Version None)
Quarter: 2009Q2

REPORT INFORMATION
  Report Type: 
  Country: None (occurrence: None)
  Receive Date: 20090604
  Receipt Date: 20090501
  Transmission Date: 20091009
  Serious: Yes (Other)
  Sender: FDA-Public Use
  Company Number: US-BAYER-200920281NA

PATIENT
  Age: 85 Year
  Sex: Female
  Weight: 68 kg

DRUGS (16)
  1. MAGNEVIST [Suspect]
     Indication: NUCLEAR MAGNETIC RESONANCE IMAGING
     Dosage: AS USED: 30 ML
     Route: 042
     Dates: start: 20050104, end: 20050104
  2. MAGNEVIST [Suspect]
     Dosage: TOTAL DAILY DOSE: 20 ML
     Route: 042
     Dates: start: 20060208, end: 20060208
  3. MULTIHANCE [Suspect]
     Indication: NUCLEAR MAGNETIC RESONANCE IMAGING ABDOMINAL
     Dosage: TOTAL DAILY DOSE: 20 ML
     Route: 042
     Dates: start: 20060324, end: 20060324
  4. ARANESP [Concomitant]
     Dosage: 300 ?G Q WEEK
     Route: 058
  5. TAMOXIFEN CITRATE [Concomitant]
     Dates: start: 20080201
  6. PHOSLO [Concomitant]
  7. TRENTAL [Concomitant]
  8. METOPROLOL SUCCINATE [Concomitant]
  9. DILTIAZEM [Concomitant]
  10. LOVASTATIN [Concomitant]
  11. LEVOTHYROXINE [Concomitant]
  12. DARBEPOETIN ALFA [Concomitant]
  13. NEPHROVITE [Concomitant]
  14. OMEPRAZOLE [Concomitant]
  15. SIMVASTATIN [Concomitant]
  16. HYDRALAZINE HCL [Concomitant]

REACTIONS (19)
  - ASTHENIA [None]
  - BACK PAIN [None]
  - BALANCE DISORDER [None]
  - DRY SKIN [None]
  - EXERCISE TOLERANCE DECREASED [None]
  - GAIT DISTURBANCE [None]
  - HYPOAESTHESIA [None]
  - HYPOKINESIA [None]
  - MUSCULAR WEAKNESS [None]
  - MUSCULOSKELETAL STIFFNESS [None]
  - NEPHROGENIC SYSTEMIC FIBROSIS [None]
  - PAIN [None]
  - PAIN IN EXTREMITY [None]
  - PITTING OEDEMA [None]
  - PRURITUS GENERALISED [None]
  - SKIN DISORDER [None]
  - SKIN EXFOLIATION [None]
  - SKIN INDURATION [None]
  - SKIN PLAQUE [None]
